FAERS Safety Report 21272943 (Version 1)
Quarter: 2022Q3

REPORT INFORMATION
  Report Type: Other
  Country: US (occurrence: None)
  Receive Date: 20220831
  Receipt Date: 20220831
  Transmission Date: 20221027
  Serious: Yes (Death)
  Sender: FDA-Public Use
  Company Number: US-ROCHE-3169833

PATIENT
  Sex: Male

DRUGS (1)
  1. TECENTRIQ [Suspect]
     Active Substance: ATEZOLIZUMAB
     Indication: Renal cancer
     Dosage: INFUSE 1200MG INTRAVENOUSLY EVERY 3 WEEKS
     Route: 041

REACTIONS (2)
  - Death [Fatal]
  - Off label use [Unknown]
